FAERS Safety Report 9750218 (Version 2)
Quarter: 2014Q1

REPORT INFORMATION
  Report Type: Spontaneous
  Country: US (occurrence: US)
  Receive Date: 20131212
  Receipt Date: 20140114
  Transmission Date: 20141002
  Serious: Yes (Death, Hospitalization)
  Sender: FDA-Public Use
  Company Number: US-FRI-1000052077

PATIENT
  Age: 24 Year
  Sex: Female
  Weight: 54 kg

DRUGS (6)
  1. VIIBRYD [Suspect]
     Indication: POSTPARTUM DEPRESSION
     Dosage: 10MG
     Route: 048
     Dates: start: 20131003, end: 20131009
  2. VIIBRYD [Suspect]
     Dosage: 20MG
     Route: 048
     Dates: start: 20131010, end: 20131016
  3. VIIBRYD [Suspect]
     Dosage: 40MG
     Route: 048
     Dates: start: 20131017
  4. HUMIRA [Concomitant]
     Indication: CROHN^S DISEASE
     Dosage: 40MG
  5. PERCOCET [Concomitant]
     Indication: PAIN
     Dosage: 7.5/ 325MG AS NEEDED
  6. ZOFRAN [Concomitant]
     Indication: NAUSEA
     Dosage: 4MG AS NEEDED

REACTIONS (2)
  - Crohn^s disease [Fatal]
  - Off label use [Unknown]
